FAERS Safety Report 10687248 (Version 1)
Quarter: 2015Q1

REPORT INFORMATION
  Report Type: Spontaneous
  Country: US (occurrence: US)
  Receive Date: 20150102
  Receipt Date: 20150102
  Transmission Date: 20150720
  Serious: Yes (Hospitalization)
  Sender: FDA-Public Use
  Company Number: US-BEH-2014047604

PATIENT
  Age: 9 Month
  Sex: Male
  Weight: 13 kg

DRUGS (1)
  1. HIZENTRA [Suspect]
     Active Substance: HUMAN IMMUNOGLOBULIN G

REACTIONS (1)
  - Stem cell transplant [Unknown]

NARRATIVE: CASE EVENT DATE: 20140914
